FAERS Safety Report 4719192-X (Version None)
Quarter: 2005Q3

REPORT INFORMATION
  Report Type: 
  Country: None (occurrence: None)
  Receive Date: 20050720
  Receipt Date: 20050621
  Transmission Date: 20060218
  Serious: Yes (Life-Threatening, Hospitalization, Disabling)
  Sender: FDA-Public Use
  Company Number: 2005UW09440

PATIENT
  Age: 62 Year
  Sex: Male
  Weight: 48 kg

DRUGS (2)
  1. METHOTREXATE [Suspect]
     Indication: SQUAMOUS CELL CARCINOMA
     Dosage: 62 MG WEEK IV
     Route: 042
     Dates: start: 20050609, end: 20050609
  2. MORPHINE [Concomitant]

REACTIONS (7)
  - HYPONATRAEMIA [None]
  - HYPOTENSION [None]
  - PNEUMONIA [None]
  - SEPSIS [None]
  - SEPTIC SHOCK [None]
  - THERAPY NON-RESPONDER [None]
  - WHITE BLOOD CELL COUNT DECREASED [None]
